FAERS Safety Report 25622085 (Version 1)
Quarter: 2025Q3

REPORT INFORMATION
  Report Type: Spontaneous
  Country: CN (occurrence: CN)
  Receive Date: 20250730
  Receipt Date: 20250730
  Transmission Date: 20251020
  Serious: Yes (Hospitalization)
  Sender: MERCK SHARP & DOHME LLC
  Company Number: CN-009507513-2312282

PATIENT
  Age: 49 Year
  Sex: Male
  Weight: 59 kg

DRUGS (2)
  1. KEYTRUDA [Suspect]
     Active Substance: PEMBROLIZUMAB
     Indication: Hepatic cancer
     Route: 041
     Dates: start: 20250710, end: 20250710
  2. SODIUM CHLORIDE [Concomitant]
     Active Substance: SODIUM CHLORIDE
     Indication: Hepatic cancer
     Route: 041
     Dates: start: 20250710, end: 20250710

REACTIONS (3)
  - Myelosuppression [Recovering/Resolving]
  - Prothrombin time prolonged [Unknown]
  - Jaundice [Unknown]

NARRATIVE: CASE EVENT DATE: 20250719
